FAERS Safety Report 25984535 (Version 2)
Quarter: 2025Q4

REPORT INFORMATION
  Report Type: Report from Study
  Country: US (occurrence: US)
  Receive Date: 20251031
  Receipt Date: 20251125
  Transmission Date: 20260117
  Serious: Yes (Hospitalization)
  Sender: ABBVIE
  Company Number: US-ABBVIE-6523497

PATIENT
  Age: 78 Year
  Sex: Male

DRUGS (5)
  1. VYALEV [Suspect]
     Active Substance: FOSCARBIDOPA\FOSLEVODOPA
     Indication: Parkinson^s disease
     Route: 058
     Dates: start: 20251010, end: 20251014
  2. VYALEV [Suspect]
     Active Substance: FOSCARBIDOPA\FOSLEVODOPA
     Route: 058
     Dates: start: 20251018
  3. CARBIDOPA\LEVODOPA [Concomitant]
     Active Substance: CARBIDOPA\LEVODOPA
     Indication: Product used for unknown indication
     Route: 048
     Dates: start: 20251014
  4. DOXYCYCLINE [Concomitant]
     Active Substance: DOXYCYCLINE
     Indication: Product used for unknown indication
     Dates: start: 20251015
  5. BACTRIM [Concomitant]
     Active Substance: SULFAMETHOXAZOLE\TRIMETHOPRIM
     Indication: Product used for unknown indication

REACTIONS (15)
  - Chest pain [Recovered/Resolved]
  - Dyspnoea [Recovered/Resolved]
  - Catheter site abscess [Recovered/Resolved]
  - Muscle spasms [Unknown]
  - Neck pain [Recovered/Resolved]
  - Autoimmune disorder [Unknown]
  - Pain [Unknown]
  - Orthostatic hypotension [Recovering/Resolving]
  - Peripheral coldness [Unknown]
  - Hyperhidrosis [Unknown]
  - Normocytic anaemia [Unknown]
  - Catheter site mass [Not Recovered/Not Resolved]
  - Catheter site rash [Unknown]
  - Catheter site cellulitis [Unknown]
  - Catheter site bruise [Unknown]

NARRATIVE: CASE EVENT DATE: 20250101
